FAERS Safety Report 5366738-7 (Version None)
Quarter: 2007Q2

REPORT INFORMATION
  Report Type: 
  Country: None (occurrence: None)
  Receive Date: 20070622
  Receipt Date: 20060929
  Transmission Date: 20071010
  Serious: No
  Sender: FDA-Public Use
  Company Number: US-ASTRAZENECA-2006UW19070

PATIENT
  Sex: Female

DRUGS (1)
  1. RHINOCORT [Suspect]
     Route: 045
     Dates: start: 20060925

REACTIONS (2)
  - NASAL DISCOMFORT [None]
  - RASH [None]
